FAERS Safety Report 23978416 (Version 1)
Quarter: 2024Q2

REPORT INFORMATION
  Report Type: Spontaneous
  Country: US (occurrence: US)
  Receive Date: 20240614
  Receipt Date: 20240614
  Transmission Date: 20240715
  Serious: Yes (Death, Other)
  Sender: FDA-Public Use
  Company Number: US-009507513-2406USA003258

PATIENT
  Sex: Female

DRUGS (5)
  1. KEYTRUDA [Suspect]
     Active Substance: PEMBROLIZUMAB
     Indication: Triple negative breast cancer
     Dosage: 200 MG, EVERY 21 DAYS
  2. CARBOPLATIN [Suspect]
     Active Substance: CARBOPLATIN
     Indication: Triple negative breast cancer
     Dosage: UNK
  3. GEMZAR [Suspect]
     Active Substance: GEMCITABINE HYDROCHLORIDE
     Indication: Triple negative breast cancer
     Dosage: UNK
  4. ADRIAMYCIN [Suspect]
     Active Substance: DOXORUBICIN HYDROCHLORIDE
     Indication: Triple negative breast cancer
     Dosage: UNK
  5. CYTOXAN [Suspect]
     Active Substance: CYCLOPHOSPHAMIDE
     Indication: Triple negative breast cancer
     Dosage: UNK

REACTIONS (5)
  - Death [Fatal]
  - Adrenal insufficiency [Unknown]
  - General physical health deterioration [Unknown]
  - Gait inability [Unknown]
  - Surgery [Unknown]
